FAERS Safety Report 16389430 (Version 1)
Quarter: 2019Q3

REPORT INFORMATION
  Report Type: Spontaneous
  Country: US (occurrence: US)
  Receive Date: 20190603
  Receipt Date: 20190603
  Transmission Date: 20191004
  Serious: Yes (Disabling, Other)
  Sender: FDA-Public Use
  Company Number: None

PATIENT
  Age: 50 Year
  Sex: Female
  Weight: 62.1 kg

DRUGS (8)
  1. PROGESTERONE. [Concomitant]
     Active Substance: PROGESTERONE
  2. VITAMIN B COMPLEX [Concomitant]
     Active Substance: CYANOCOBALAMIN\DEXPANTHENOL\NIACINAMIDE\PYRIDOXINE HYDROCHLORIDE\RIBOFLAVIN 5^-PHOSPHATE SODIUM\THIAMINE HYDROCHLORIDE\VITAMIN B COMPLEX
  3. COLLAGEN POWDER [Concomitant]
  4. BIMAPTOPROST [Suspect]
     Active Substance: BIMATOPROST
     Indication: MADAROSIS
     Route: 061
     Dates: start: 20190513, end: 20190602
  5. TRIAMTERENE. [Concomitant]
     Active Substance: TRIAMTERENE
  6. BIRTH CONTROL PILLS [Concomitant]
     Active Substance: UNSPECIFIED INGREDIENT
  7. SERTRALINE [Concomitant]
     Active Substance: SERTRALINE HYDROCHLORIDE
  8. BIOTIN [Concomitant]
     Active Substance: BIOTIN

REACTIONS (8)
  - Vision blurred [None]
  - Blindness [None]
  - Halo vision [None]
  - Night blindness [None]
  - Visual field defect [None]
  - Balance disorder [None]
  - Tunnel vision [None]
  - Eye pain [None]

NARRATIVE: CASE EVENT DATE: 20190601
